FAERS Safety Report 10533514 (Version 1)
Quarter: 2014Q4

REPORT INFORMATION
  Report Type: Spontaneous
  Country: AR (occurrence: AR)
  Receive Date: 20141022
  Receipt Date: 20141022
  Transmission Date: 20150529
  Serious: Yes (Hospitalization)
  Sender: FDA-Public Use
  Company Number: PHHY2014AR137691

PATIENT
  Sex: Male

DRUGS (2)
  1. DICLOFENAC [Suspect]
     Active Substance: DICLOFENAC
     Indication: ARTHRALGIA
     Dosage: 3 DF, UNK
     Route: 065
  2. VOLTAREN [Suspect]
     Active Substance: DICLOFENAC SODIUM
     Indication: ARTHRALGIA
     Dosage: 75 MG, BID (AS NEEDED)
     Route: 048

REACTIONS (7)
  - Bone pain [Recovered/Resolved]
  - Choking sensation [Recovered/Resolved]
  - Concomitant disease aggravated [Recovered/Resolved]
  - Drug ineffective [Recovered/Resolved]
  - Hiatus hernia [Recovered/Resolved]
  - Hypophagia [Recovered/Resolved]
  - Spinal pain [Recovered/Resolved]
